FAERS Safety Report 8913513 (Version 1)
Quarter: 2012Q4

REPORT INFORMATION
  Report Type: 
  Country: US (occurrence: US)
  Receive Date: 20121116
  Receipt Date: 20121116
  Transmission Date: 20130627
  Serious: No
  Sender: FDA-Public Use
  Company Number: US-BIOGENIDEC-2012BI051995

PATIENT
  Sex: Male

DRUGS (3)
  1. TYSABRI [Suspect]
     Indication: MULTIPLE SCLEROSIS
     Route: 042
     Dates: start: 20090923
  2. AVONEX [Concomitant]
     Indication: MULTIPLE SCLEROSIS
     Route: 030
     Dates: start: 20030629
  3. OXYCONTIN [Concomitant]
     Indication: INTERVERTEBRAL DISC DEGENERATION

REACTIONS (11)
  - Drug withdrawal syndrome [Unknown]
  - Mobility decreased [Recovered/Resolved]
  - Hyperhidrosis [Not Recovered/Not Resolved]
  - Central nervous system lesion [Unknown]
  - Diarrhoea [Not Recovered/Not Resolved]
  - Restless legs syndrome [Unknown]
  - Intervertebral disc degeneration [Not Recovered/Not Resolved]
  - Dehydration [Unknown]
  - Nasopharyngitis [Recovered/Resolved]
  - Asthenia [Unknown]
  - Hot flush [Not Recovered/Not Resolved]
